FAERS Safety Report 17739564 (Version 1)
Quarter: 2020Q2

REPORT INFORMATION
  Report Type: Spontaneous
  Country: DK (occurrence: DK)
  Receive Date: 20200504
  Receipt Date: 20200504
  Transmission Date: 20200714
  Serious: Yes (Other)
  Sender: FDA-Public Use
  Company Number: DK-BRISTOL-MYERS SQUIBB COMPANY-BMS-2020-034452

PATIENT
  Age: 47 Year
  Sex: Male

DRUGS (1)
  1. KENALOG [Suspect]
     Active Substance: TRIAMCINOLONE ACETONIDE
     Indication: PERIARTHRITIS
     Dosage: 40 MILLIGRAM (STYRKE: 40 MG/ML)
     Route: 065
     Dates: start: 20181008, end: 20181109

REACTIONS (4)
  - Chorioretinopathy [Recovering/Resolving]
  - Detachment of retinal pigment epithelium [Recovering/Resolving]
  - Visual impairment [Recovering/Resolving]
  - Condition aggravated [Recovering/Resolving]

NARRATIVE: CASE EVENT DATE: 201812
